FAERS Safety Report 8066376-1 (Version None)
Quarter: 2012Q1

REPORT INFORMATION
  Report Type: 
  Country: None (occurrence: None)
  Receive Date: 20120124
  Receipt Date: 20120112
  Transmission Date: 20120608
  Serious: Yes (Hospitalization)
  Sender: FDA-Public Use
  Company Number: US-UCBSA-049622

PATIENT
  Sex: Female

DRUGS (1)
  1. VIMPAT [Suspect]

REACTIONS (1)
  - TOXIC EPIDERMAL NECROLYSIS [None]
